FAERS Safety Report 14073648 (Version 1)
Quarter: 2017Q4

REPORT INFORMATION
  Report Type: Spontaneous
  Country: US (occurrence: US)
  Receive Date: 20171010
  Receipt Date: 20171010
  Transmission Date: 20180321
  Serious: No
  Sender: FDA-Public Use
  Company Number: US-JNJFOC-20170819948

PATIENT
  Age: 68 Year
  Sex: Female
  Weight: 68.04 kg

DRUGS (3)
  1. TYLENOL EXTRA STRENGTH [Suspect]
     Active Substance: ACETAMINOPHEN
     Indication: ANALGESIC THERAPY
     Route: 048
  2. SENNA S [Concomitant]
     Active Substance: DOCUSATE SODIUM\SENNA LEAF
     Indication: BOWEL MOVEMENT IRREGULARITY
     Dosage: 2 YEARS
     Route: 065
  3. SENNA S [Concomitant]
     Active Substance: DOCUSATE SODIUM\SENNA LEAF
     Indication: ABNORMAL FAECES
     Dosage: 2 YEARS
     Route: 065

REACTIONS (2)
  - Drug ineffective [Unknown]
  - Constipation [Recovered/Resolved]
